FAERS Safety Report 10207046 (Version 3)
Quarter: 2014Q3

REPORT INFORMATION
  Report Type: Spontaneous
  Country: US (occurrence: US)
  Receive Date: 20140530
  Receipt Date: 20140716
  Transmission Date: 20150326
  Serious: No
  Sender: FDA-Public Use
  Company Number: US-PFIZER INC-2014146362

PATIENT
  Sex: Female

DRUGS (1)
  1. CELEBREX [Suspect]
     Active Substance: CELECOXIB
     Dosage: UNK

REACTIONS (5)
  - Neuropathy peripheral [Unknown]
  - Hypoaesthesia [Unknown]
  - Musculoskeletal stiffness [Unknown]
  - Muscular weakness [Unknown]
  - Nodule [Unknown]
